FAERS Safety Report 7008763-6 (Version None)
Quarter: 2010Q3

REPORT INFORMATION
  Report Type: 
  Country: None (occurrence: None)
  Receive Date: 20100921
  Receipt Date: 20100907
  Transmission Date: 20110219
  Serious: Yes (Hospitalization, Other)
  Sender: FDA-Public Use
  Company Number: IDA-00433

PATIENT
  Age: 36 Year
  Sex: Female

DRUGS (20)
  1. PROPRANOLOL [Suspect]
     Indication: PRODUCT USED FOR UNKNOWN INDICATION
  2. ARIPIPRAZOLE [Suspect]
     Indication: PRODUCT USED FOR UNKNOWN INDICATION
     Dates: start: 20100205, end: 20100702
  3. (DIHYDROCODEINE) [Suspect]
     Indication: BACK PAIN
     Dosage: 30 MG 1 TO 2 TDS
     Dates: start: 20090923
  4. LAMICTAL [Suspect]
     Indication: EPILEPSY
     Dosage: 400 MG BID, ORAL
     Route: 048
     Dates: start: 20040101
  5. LANSOPRAZOLE [Suspect]
     Indication: PRODUCT USED FOR UNKNOWN INDICATION
  6. (NORETHISTERONE) STRENGTH: 350UG [Suspect]
     Indication: PRODUCT USED FOR UNKNOWN INDICATION
     Dates: start: 20090923
  7. SERTRALINE HYDROCHLORIDE [Suspect]
     Indication: PRODUCT USED FOR UNKNOWN INDICATION
     Dosage: 100 MG BID
  8. (AMOXICILLIN) [Concomitant]
  9. BETAMETHASONE [Concomitant]
  10. CHLORAMPHENICOL [Concomitant]
  11. (CLOBAZAM) [Concomitant]
  12. AMOXICILLIN AND CLAVULANATE POTASSIUM [Concomitant]
  13. DICLOFENAC SODIUM [Concomitant]
  14. FOLIC ACID [Concomitant]
  15. LACTULOSE [Concomitant]
  16. (LIDOCAINE) [Concomitant]
  17. MICONAZOLE [Concomitant]
  18. MULTIVITAMIN AND MINERAL SUPPLEMENT (MINERALS NOS, VITAMINS NOS) [Concomitant]
  19. (OMEPRAZOLE) [Concomitant]
  20. PROCHLORPERAZINE [Concomitant]

REACTIONS (7)
  - BACK PAIN [None]
  - CHOLESTASIS OF PREGNANCY [None]
  - CONVULSION [None]
  - DRUG EXPOSURE DURING PREGNANCY [None]
  - INDUCED LABOUR [None]
  - PREGNANCY [None]
  - PREMATURE LABOUR [None]
